FAERS Safety Report 17628421 (Version 3)
Quarter: 2020Q2

REPORT INFORMATION
  Report Type: Report from Study
  Country: US (occurrence: US)
  Receive Date: 20200406
  Receipt Date: 20200423
  Transmission Date: 20200713
  Serious: Yes (Hospitalization, Other)
  Sender: FDA-Public Use
  Company Number: NVSC2020US091282

PATIENT
  Age: 81 Year
  Sex: Male

DRUGS (2)
  1. ENTRESTO [Suspect]
     Active Substance: SACUBITRIL\VALSARTAN
     Indication: CARDIAC FAILURE CHRONIC
     Dosage: 1 DF, BID
     Route: 048
     Dates: start: 20200320
  2. AMIODARONE [Suspect]
     Active Substance: AMIODARONE
     Indication: PRODUCT USED FOR UNKNOWN INDICATION
     Route: 065

REACTIONS (11)
  - Hypoacusis [Unknown]
  - Pain in extremity [Recovering/Resolving]
  - Hypotension [Recovering/Resolving]
  - Dehydration [Unknown]
  - Therapeutic response unexpected [Recovering/Resolving]
  - Heart rate abnormal [Unknown]
  - Malaise [Unknown]
  - Peripheral swelling [Recovered/Resolved]
  - Dizziness [Unknown]
  - Asthenia [Recovering/Resolving]
  - Thirst [Unknown]

NARRATIVE: CASE EVENT DATE: 20200413
